FAERS Safety Report 19224973 (Version 2)
Quarter: 2021Q2

REPORT INFORMATION
  Report Type: Spontaneous
  Country: US (occurrence: US)
  Receive Date: 20210506
  Receipt Date: 20210608
  Transmission Date: 20210717
  Serious: Yes (Other)
  Sender: FDA-Public Use
  Company Number: US-IMPRIMIS NJOF-2110275

PATIENT
  Age: 85 Year
  Sex: Female

DRUGS (1)
  1. CYCLOSPORINE/CHONDROITIN SULFATE PF [Suspect]
     Active Substance: CYCLOSPORINE
     Indication: DRY EYE
     Route: 047
     Dates: start: 20210429

REACTIONS (1)
  - Hypersensitivity [Recovering/Resolving]

NARRATIVE: CASE EVENT DATE: 20210429
